FAERS Safety Report 14478211 (Version 1)
Quarter: 2018Q1

REPORT INFORMATION
  Report Type: Spontaneous
  Country: FR (occurrence: FR)
  Receive Date: 20180202
  Receipt Date: 20180202
  Transmission Date: 20180509
  Serious: Yes (Life-Threatening, Hospitalization)
  Sender: FDA-Public Use
  Company Number: FR-ROCHE-2060055

PATIENT
  Age: 54 Year
  Sex: Female
  Weight: 79 kg

DRUGS (13)
  1. SOLUPRED (FRANCE) [Suspect]
     Active Substance: PREDNISOLONE
     Indication: HEART TRANSPLANT
     Route: 048
     Dates: start: 20170818
  2. DIFFU K [Concomitant]
     Active Substance: POTASSIUM CHLORIDE
     Route: 065
  3. HEPARINE CALCIQUE [Concomitant]
     Active Substance: HEPARIN CALCIUM
     Route: 065
  4. CELLCEPT [Suspect]
     Active Substance: MYCOPHENOLATE MOFETIL\MYCOPHENOLATE MOFETIL HYDROCHLORIDE
     Indication: HEART TRANSPLANT
     Route: 048
     Dates: start: 20170818
  5. BURINEX [Concomitant]
     Active Substance: BUMETANIDE
     Route: 065
  6. INSULINE [Concomitant]
     Active Substance: INSULIN NOS
     Route: 065
  7. KARDEGIC [Concomitant]
     Active Substance: ASPIRIN DL-LYSINE
     Route: 065
  8. ATORVASTATINE [Concomitant]
     Active Substance: ATORVASTATIN
     Route: 065
  9. CEFTRIAXONE. [Concomitant]
     Active Substance: CEFTRIAXONE
     Route: 065
  10. CALCIDOSE (FRANCE) [Concomitant]
     Active Substance: CALCIUM CARBONATE
     Route: 065
  11. ARANESP [Concomitant]
     Active Substance: DARBEPOETIN ALFA
     Route: 065
  12. NEORAL [Suspect]
     Active Substance: CYCLOSPORINE
     Indication: HEART TRANSPLANT
     Route: 048
     Dates: start: 20170818, end: 20171104
  13. PHOSPHORE (FRANCE) [Concomitant]
     Route: 065

REACTIONS (2)
  - Posterior reversible encephalopathy syndrome [Recovering/Resolving]
  - Cytomegalovirus colitis [Not Recovered/Not Resolved]

NARRATIVE: CASE EVENT DATE: 20171103
